FAERS Safety Report 6866868-4 (Version None)
Quarter: 2010Q3

REPORT INFORMATION
  Report Type: 
  Country: None (occurrence: None)
  Receive Date: 20100722
  Receipt Date: 20100715
  Transmission Date: 20110219
  Serious: Yes (Hospitalization)
  Sender: FDA-Public Use
  Company Number: CZ-B.I. PHARMACEUTICALS,INC./RIDGEFIELD-2010-BP-07713YA

PATIENT
  Sex: Male
  Weight: 88 kg

DRUGS (6)
  1. TAMSULOSIN OCR (BLIND) [Suspect]
     Indication: HYPERTONIC BLADDER
     Route: 048
     Dates: start: 20100412
  2. TAMSULOSIN OCR (BLIND) [Suspect]
     Indication: BENIGN PROSTATIC HYPERPLASIA
  3. AZITHROMYCIN [Concomitant]
     Indication: NASOPHARYNGITIS
     Dosage: 500 MG
     Route: 048
     Dates: start: 20100626, end: 20100630
  4. ACETAMINOPHEN [Concomitant]
     Indication: NASOPHARYNGITIS
     Dosage: 500 MG
     Route: 048
     Dates: start: 20100626, end: 20100630
  5. BROMHEXIN (BROMHEXINE HYDROCHLORIDE) [Concomitant]
     Indication: NASOPHARYNGITIS
     Dosage: 12 MG
     Route: 048
     Dates: start: 20100626, end: 20100630
  6. MUSCORIL (THIOCOLCHICOSIDE) [Concomitant]
     Dosage: 4 MG
     Route: 030
     Dates: start: 20100626, end: 20100626

REACTIONS (1)
  - ATRIAL FIBRILLATION [None]
